FAERS Safety Report 16958999 (Version 4)
Quarter: 2019Q4

REPORT INFORMATION
  Report Type: Spontaneous
  Country: US (occurrence: US)
  Receive Date: 20191024
  Receipt Date: 20191202
  Transmission Date: 20200122
  Serious: No
  Sender: FDA-Public Use
  Company Number: US-AMGEN-USASP2019177120

PATIENT
  Age: 54 Year
  Sex: Male

DRUGS (2)
  1. NEULASTA [Suspect]
     Active Substance: PEGFILGRASTIM
     Indication: NEUTROPHIL COUNT DECREASED
     Dosage: 6 MILLILITER, Q2WK (IF NEEDED)
     Route: 058
     Dates: start: 20190808
  2. NEULASTA [Suspect]
     Active Substance: PEGFILGRASTIM
     Dosage: 6 MILLILITER, Q2WK (IF NEEDED)
     Route: 058

REACTIONS (1)
  - Drug delivery system malfunction [Unknown]

NARRATIVE: CASE EVENT DATE: 20191022
